FAERS Safety Report 7610342-4 (Version None)
Quarter: 2011Q3

REPORT INFORMATION
  Report Type: 
  Country: None (occurrence: None)
  Receive Date: 20110707
  Receipt Date: 20110622
  Transmission Date: 20111222
  Serious: Yes (Hospitalization, Other)
  Sender: FDA-Public Use
  Company Number: 2010AL002944

PATIENT
  Age: 59 Year
  Sex: Female
  Weight: 178.2 kg

DRUGS (56)
  1. DITROPAN [Concomitant]
  2. TETRABENAZINE [Concomitant]
  3. DIAZEPAM [Concomitant]
  4. CIPROFLOXACIN [Concomitant]
  5. PROPDXYPHENE [Concomitant]
  6. ALLEGRA [Concomitant]
  7. MEDROL [Concomitant]
  8. AVELOX [Concomitant]
  9. PROPRANOLOL [Concomitant]
  10. CATAPRES [Concomitant]
  11. FENOFIBRATE [Concomitant]
  12. POTASSIUM CHLORIDE [Concomitant]
  13. ATIVAN [Concomitant]
  14. VIOXX [Concomitant]
  15. MEBENDAZOLE [Concomitant]
  16. BACLOFEN [Concomitant]
  17. METOCLOPRAMIDE [Suspect]
     Indication: ERUCTATION
     Dosage: 10 MG; PO
     Route: 048
     Dates: start: 19990101, end: 20080801
  18. FOSAMAX [Concomitant]
  19. PREVACID [Concomitant]
  20. ARMODAFINIL [Concomitant]
  21. LORTAB [Concomitant]
  22. SINEMET [Concomitant]
  23. MISOPROSTOL [Concomitant]
  24. DEXTROAMPHETAMINE [Concomitant]
  25. OMEPRAZOLE [Concomitant]
  26. TOLTERODINE TARTRATE [Concomitant]
  27. SKELAXIN [Concomitant]
  28. PROMETHAZINE [Concomitant]
  29. MERIDIA [Concomitant]
  30. PHENTERMINE [Concomitant]
  31. TROSPIUM CHLORIDE [Concomitant]
  32. LIDOCAINE [Concomitant]
  33. LOTENSIN [Concomitant]
  34. ADDERALL 10 [Concomitant]
  35. ZYRTEC [Concomitant]
  36. AMOXICILLIN [Concomitant]
  37. CLONAZEPAM [Concomitant]
  38. HYDROCHLOROTHIAZIDE [Concomitant]
  39. KEPPRA [Concomitant]
  40. IBUPROFEN [Concomitant]
  41. ORLISTAT [Concomitant]
  42. LEVAQUIN [Concomitant]
  43. AMLODIPINE [Concomitant]
  44. DANTROLENE [Concomitant]
  45. HYDROCORTISONE [Concomitant]
  46. DETROL [Concomitant]
  47. AUGMENTIN '125' [Concomitant]
  48. INDOMETHACIN [Concomitant]
  49. DOMPERIDONE [Concomitant]
  50. ASPIRIN [Concomitant]
  51. LEVOTHYROXINE SODIUM [Concomitant]
  52. BIAXIN [Concomitant]
  53. METHOCARBAMOL [Concomitant]
  54. TRAZODONE HCL [Concomitant]
  55. LUNESTA [Concomitant]
  56. TRAMADOL HCL [Concomitant]

REACTIONS (56)
  - HYPERTHYROIDISM [None]
  - BRUXISM [None]
  - TOOTH FRACTURE [None]
  - MUSCLE TWITCHING [None]
  - BACK PAIN [None]
  - BLOOD CHOLESTEROL INCREASED [None]
  - HYPOTHYROIDISM [None]
  - ARTHRALGIA [None]
  - INSOMNIA [None]
  - EROSIVE OESOPHAGITIS [None]
  - MUSCLE HYPERTROPHY [None]
  - MYALGIA [None]
  - HAEMORRHOIDS [None]
  - HYPOAESTHESIA [None]
  - BREAST DISORDER [None]
  - CARPAL TUNNEL SYNDROME [None]
  - ACQUIRED OESOPHAGEAL WEB [None]
  - EXTRAPYRAMIDAL DISORDER [None]
  - OSTEOPOROSIS [None]
  - MUSCLE TIGHTNESS [None]
  - ROAD TRAFFIC ACCIDENT [None]
  - DIPLOPIA [None]
  - BLOOD TRIGLYCERIDES INCREASED [None]
  - DYSPHAGIA [None]
  - MASS [None]
  - EMOTIONAL DISORDER [None]
  - DYSKINESIA [None]
  - NARCOLEPSY [None]
  - ATTENTION DEFICIT/HYPERACTIVITY DISORDER [None]
  - ANXIETY [None]
  - TRANSIENT ISCHAEMIC ATTACK [None]
  - ASPIRATION [None]
  - HYPERTENSION [None]
  - GINGIVAL BLEEDING [None]
  - BRONCHITIS [None]
  - CIRCADIAN RHYTHM SLEEP DISORDER [None]
  - INCONTINENCE [None]
  - PARAESTHESIA [None]
  - TREMOR [None]
  - ECONOMIC PROBLEM [None]
  - HYPERTRIGLYCERIDAEMIA [None]
  - HYPERTONIC BLADDER [None]
  - MUSCLE SPASMS [None]
  - LOSS OF CONSCIOUSNESS [None]
  - SLEEP APNOEA SYNDROME [None]
  - INCORRECT DRUG ADMINISTRATION DURATION [None]
  - TENSION [None]
  - MUSCULOSKELETAL PAIN [None]
  - MENOPAUSE [None]
  - DYSPNOEA [None]
  - FLATULENCE [None]
  - TARDIVE DYSKINESIA [None]
  - DYSTONIA [None]
  - CONSTIPATION [None]
  - CHEST DISCOMFORT [None]
  - HYPERLIPIDAEMIA [None]
